FAERS Safety Report 10534639 (Version 2)
Quarter: 2014Q4

REPORT INFORMATION
  Report Type: Spontaneous
  Country: TR (occurrence: TR)
  Receive Date: 20141022
  Receipt Date: 20141118
  Transmission Date: 20150529
  Serious: Yes (Other)
  Sender: FDA-Public Use
  Company Number: TR-GLAXOSMITHKLINE-TR2014GSK004235

PATIENT
  Age: 10 Year
  Sex: Male

DRUGS (1)
  1. VENTOLIN [Suspect]
     Active Substance: ALBUTEROL SULFATE
     Indication: ASTHMA
     Dosage: UNK
     Route: 055
     Dates: start: 2011, end: 201410

REACTIONS (2)
  - Underdose [Recovered/Resolved]
  - Bronchostenosis [Not Recovered/Not Resolved]

NARRATIVE: CASE EVENT DATE: 2011
